FAERS Safety Report 18243858 (Version 1)
Quarter: 2020Q3

REPORT INFORMATION
  Report Type: Report from Study
  Country: GB (occurrence: GB)
  Receive Date: 20200908
  Receipt Date: 20200908
  Transmission Date: 20201103
  Serious: Yes (Other)
  Sender: FDA-Public Use
  Company Number: NVSC2020GB234722

PATIENT
  Sex: Female

DRUGS (1)
  1. ERELZI [Suspect]
     Active Substance: ETANERCEPT-SZZS
     Indication: RHEUMATOID ARTHRITIS
     Dosage: 1 DF, QW
     Route: 058
     Dates: start: 20190206

REACTIONS (14)
  - Decreased appetite [Unknown]
  - Loss of consciousness [Unknown]
  - Pain [Unknown]
  - Arthralgia [Unknown]
  - Nausea [Unknown]
  - Hand deformity [Unknown]
  - Illness [Unknown]
  - Gastrointestinal disorder [Unknown]
  - Blood pressure increased [Unknown]
  - Pain in extremity [Unknown]
  - Fatigue [Unknown]
  - Eye infection [Unknown]
  - Depressed mood [Unknown]
  - Oral pain [Unknown]
